FAERS Safety Report 4423347-1 (Version None)
Quarter: 2004Q3

REPORT INFORMATION
  Report Type: 
  Country: None (occurrence: None)
  Receive Date: 20040806
  Receipt Date: 20040803
  Transmission Date: 20050211
  Serious: Yes (Death)
  Sender: FDA-Public Use
  Company Number: 04-05-0742

PATIENT
  Age: 78 Year
  Sex: Female
  Weight: 76.2043 kg

DRUGS (3)
  1. CLOZAPINE [Suspect]
     Indication: SCHIZOPHRENIA
     Dosage: 100 MG QAM ORAL
     Route: 048
     Dates: start: 20001001, end: 20040401
  2. GLYBURIDE [Concomitant]
  3. LEVOXYL [Concomitant]

REACTIONS (1)
  - MYOCARDIAL INFARCTION [None]
